FAERS Safety Report 5610906-3 (Version None)
Quarter: 2008Q1

REPORT INFORMATION
  Report Type: 
  Country: None (occurrence: None)
  Receive Date: 20080129
  Receipt Date: 20080116
  Transmission Date: 20080703
  Serious: Yes (Hospitalization)
  Sender: FDA-Public Use
  Company Number: 2008BI001415

PATIENT
  Age: 56 Year
  Sex: Female

DRUGS (1)
  1. AVONEX [Suspect]
     Indication: MULTIPLE SCLEROSIS
     Dosage: 30 UG; QW;
     Dates: start: 20040915

REACTIONS (8)
  - ABDOMINAL PAIN [None]
  - APPENDICECTOMY [None]
  - BLOOD GLUCOSE INCREASED [None]
  - CONVULSION [None]
  - FACIAL SPASM [None]
  - INCISION SITE INFECTION [None]
  - INTESTINAL GANGRENE [None]
  - STAPHYLOCOCCAL INFECTION [None]
